FAERS Safety Report 8158352-5 (Version None)
Quarter: 2012Q1

REPORT INFORMATION
  Report Type: 
  Country: None (occurrence: None)
  Receive Date: 20120217
  Receipt Date: 20120124
  Transmission Date: 20120608
  Serious: Yes (Hospitalization)
  Sender: FDA-Public Use
  Company Number: 001102911

PATIENT

DRUGS (1)
  1. PRINCIPAL SECRET BLEMISH BUSTER SOLUTION 15ML, .15OZ [Suspect]
     Indication: ACNE
     Dosage: DAILY

REACTIONS (2)
  - EYE SWELLING [None]
  - EYE DISORDER [None]
